FAERS Safety Report 4279351-X (Version None)
Quarter: 2004Q1

REPORT INFORMATION
  Report Type: 
  Country: None (occurrence: None)
  Receive Date: 20040123
  Receipt Date: 20040109
  Transmission Date: 20041129
  Serious: Yes (Other)
  Sender: FDA-Public Use
  Company Number: ZONI001280

PATIENT
  Age: 45 Year
  Sex: Female
  Weight: 90.7194 kg

DRUGS (4)
  1. ZONEGRAN [Suspect]
     Indication: BIPOLAR DISORDER
     Dosage: 400 MG DAILY ORAL
     Route: 048
     Dates: start: 20031101, end: 20031201
  2. SEROQUEL [Concomitant]
  3. CELEXA [Concomitant]
  4. ADRENOL (ADRENOL) [Concomitant]

REACTIONS (6)
  - COMMUNICATION DISORDER [None]
  - HAIR GROWTH ABNORMAL [None]
  - JUDGEMENT IMPAIRED [None]
  - MENTAL IMPAIRMENT [None]
  - UNEXPECTED THERAPEUTIC DRUG EFFECT [None]
  - WEIGHT DECREASED [None]
